FAERS Safety Report 23409345 (Version 2)
Quarter: 2024Q1

REPORT INFORMATION
  Report Type: Spontaneous
  Country: JP (occurrence: JP)
  Receive Date: 20240117
  Receipt Date: 20240122
  Transmission Date: 20240410
  Serious: Yes (Other)
  Sender: FDA-Public Use
  Company Number: JP-PFIZER INC-2019305790

PATIENT
  Age: 38 Year
  Sex: Female

DRUGS (4)
  1. INFLIXIMAB [Suspect]
     Active Substance: INFLIXIMAB
     Indication: Pustular psoriasis
     Dosage: UNK
  2. POLYSORBATE 80 [Suspect]
     Active Substance: POLYSORBATE 80
     Indication: Pustular psoriasis
     Dosage: UNK
  3. PREDNISOLONE [Concomitant]
     Active Substance: PREDNISOLONE
     Indication: Pustular psoriasis
     Dosage: UNK, DAILY (15 TO 5 MG/DAY WAS APPLIED AS A MAINTENANCE DOSE)
     Route: 048
  4. PREDNISOLONE [Concomitant]
     Active Substance: PREDNISOLONE
     Dosage: UNK, DAILY (15 TO 0 MG/DAY WAS ADDITIONALLY APPLIED AS A TEMPORARILY)
     Route: 048

REACTIONS (3)
  - Anaphylactoid reaction [Unknown]
  - Reaction to excipient [Unknown]
  - Off label use [Unknown]
